FAERS Safety Report 23222441 (Version 2)
Quarter: 2023Q4

REPORT INFORMATION
  Report Type: Report from Study
  Country: US (occurrence: US)
  Receive Date: 20231123
  Receipt Date: 20231128
  Transmission Date: 20240109
  Serious: No
  Sender: FDA-Public Use
  Company Number: US-002147023-NVSC2023US245995

PATIENT
  Sex: Male

DRUGS (1)
  1. COSENTYX [Suspect]
     Active Substance: SECUKINUMAB
     Indication: Psoriasis
     Dosage: UNK
     Route: 065

REACTIONS (8)
  - Arthralgia [Unknown]
  - Melanocytic naevus [Unknown]
  - Axillary pain [Unknown]
  - Skin irritation [Unknown]
  - Psoriasis [Unknown]
  - Papule [Unknown]
  - Pain of skin [Unknown]
  - Skin discolouration [Unknown]
